FAERS Safety Report 8340479-6 (Version None)
Quarter: 2012Q2

REPORT INFORMATION
  Report Type: 
  Country: None (occurrence: None)
  Receive Date: 20120507
  Receipt Date: 20090810
  Transmission Date: 20120825
  Serious: No
  Sender: FDA-Public Use
  Company Number: US-TEVA-2009008242

PATIENT
  Sex: Female
  Weight: 77.18 kg

DRUGS (3)
  1. ATENOLOL [Concomitant]
     Indication: ATRIAL FIBRILLATION
  2. RITUXAN [Concomitant]
     Indication: NON-HODGKIN'S LYMPHOMA
  3. TREANDA [Suspect]
     Indication: NON-HODGKIN'S LYMPHOMA
     Route: 042
     Dates: start: 20090501

REACTIONS (2)
  - STOMATITIS [None]
  - GINGIVAL PAIN [None]
